FAERS Safety Report 10960578 (Version 7)
Quarter: 2015Q3

REPORT INFORMATION
  Report Type: Report from Study
  Country: CA (occurrence: CA)
  Receive Date: 20150327
  Receipt Date: 20150909
  Transmission Date: 20151125
  Serious: Yes (Other)
  Sender: FDA-Public Use
  Company Number: CA-ROCHE-1556189

PATIENT
  Age: 44 Year
  Sex: Male

DRUGS (6)
  1. CORTISONE [Concomitant]
     Active Substance: CORTISONE\HYDROCORTISONE
  2. METHOTREXATE [Concomitant]
     Active Substance: METHOTREXATE
     Route: 065
     Dates: start: 20141217
  3. XOLAIR [Suspect]
     Active Substance: OMALIZUMAB
     Indication: CHRONIC SPONTANEOUS URTICARIA
  4. XOLAIR [Suspect]
     Active Substance: OMALIZUMAB
     Indication: ECZEMA
     Route: 058
     Dates: start: 20150122
  5. ATARAX [Concomitant]
     Active Substance: HYDROXYZINE\HYDROXYZINE HYDROCHLORIDE
  6. XOLAIR [Suspect]
     Active Substance: OMALIZUMAB
     Indication: URTICARIA

REACTIONS (18)
  - Anaphylactoid reaction [Unknown]
  - Product use issue [Unknown]
  - Urticaria [Unknown]
  - Nipple disorder [Not Recovered/Not Resolved]
  - Fluid retention [Not Recovered/Not Resolved]
  - Skin infection [Unknown]
  - Anaphylactic reaction [Unknown]
  - Hypoaesthesia [Unknown]
  - Fatigue [Not Recovered/Not Resolved]
  - Wound infection [Unknown]
  - Rash pustular [Unknown]
  - Hyperaesthesia [Recovering/Resolving]
  - Breast enlargement [Not Recovered/Not Resolved]
  - Somnolence [Unknown]
  - Skin hypertrophy [Unknown]
  - Type I hypersensitivity [Unknown]
  - Formication [Recovering/Resolving]
  - Pruritus [Unknown]

NARRATIVE: CASE EVENT DATE: 20150513
